FAERS Safety Report 10641699 (Version 1)
Quarter: 2014Q4

REPORT INFORMATION
  Report Type: Spontaneous
  Country: BE (occurrence: BE)
  Receive Date: 20141209
  Receipt Date: 20141209
  Transmission Date: 20150529
  Serious: Yes (Other)
  Sender: FDA-Public Use
  Company Number: BE-B.I. PHARMACEUTICALS,INC./RIDGEFIELD-2014-BI-58863GD

PATIENT
  Age: 70 Year
  Sex: Male
  Weight: 80 kg

DRUGS (1)
  1. PRADAXA [Suspect]
     Active Substance: DABIGATRAN ETEXILATE MESYLATE
     Indication: ATRIAL FIBRILLATION
     Dosage: 300 MG
     Route: 048

REACTIONS (5)
  - Extradural haematoma [Recovered/Resolved]
  - Neck pain [Unknown]
  - Autonomic nervous system imbalance [Recovered/Resolved]
  - Sensory loss [Recovered/Resolved]
  - Quadriplegia [Recovered/Resolved]
